FAERS Safety Report 4796876-9 (Version None)
Quarter: 2005Q4

REPORT INFORMATION
  Report Type: 
  Country: None (occurrence: None)
  Receive Date: 20051013
  Receipt Date: 20050930
  Transmission Date: 20060501
  Serious: Yes (Death)
  Sender: FDA-Public Use
  Company Number: 2005UW15164

PATIENT
  Age: 67 Year
  Sex: Male

DRUGS (1)
  1. ATENOLOL [Suspect]
     Indication: HYPERTENSION
     Route: 048

REACTIONS (4)
  - DEMENTIA [None]
  - DEMENTIA ALZHEIMER'S TYPE [None]
  - ROAD TRAFFIC ACCIDENT [None]
  - STRESS [None]
